FAERS Safety Report 21709829 (Version 1)
Quarter: 2022Q4

REPORT INFORMATION
  Report Type: Report from Study
  Country: AR (occurrence: AR)
  Receive Date: 20221210
  Receipt Date: 20221210
  Transmission Date: 20230112
  Serious: Yes (Other)
  Sender: FDA-Public Use
  Company Number: AR-002147023-PHHY2018AR013040

PATIENT
  Age: 66 Year
  Sex: Female

DRUGS (11)
  1. COSENTYX [Suspect]
     Active Substance: SECUKINUMAB
     Indication: Psoriasis
     Dosage: 300 MG, QMO
     Route: 058
     Dates: start: 20161118
  2. COSENTYX [Suspect]
     Active Substance: SECUKINUMAB
     Indication: Psoriatic arthropathy
     Dosage: 300 MG, QMO
     Route: 058
  3. COSENTYX [Suspect]
     Active Substance: SECUKINUMAB
     Dosage: 300 MG, QMO
     Route: 058
  4. COSENTYX [Suspect]
     Active Substance: SECUKINUMAB
     Dosage: 150 MG
     Route: 065
  5. COSENTYX [Suspect]
     Active Substance: SECUKINUMAB
     Dosage: 300 MG
     Route: 065
  6. COSENTYX [Suspect]
     Active Substance: SECUKINUMAB
     Dosage: UNK
     Route: 065
  7. COSENTYX [Suspect]
     Active Substance: SECUKINUMAB
     Dosage: 300 MG, QMO
     Route: 058
  8. COSENTYX [Suspect]
     Active Substance: SECUKINUMAB
     Dosage: 300 MG, QMO
     Route: 065
  9. COSENTYX [Suspect]
     Active Substance: SECUKINUMAB
     Dosage: 300 MG, QMO
     Route: 058
  10. ESCITALOPRAM [Concomitant]
     Active Substance: ESCITALOPRAM OXALATE
     Indication: Product used for unknown indication
     Dosage: 20 MG, QD
     Route: 065
  11. EMOTIVAL [Concomitant]
     Indication: Product used for unknown indication
     Dosage: 2 MG, QD
     Route: 065

REACTIONS (35)
  - Psoriatic arthropathy [Recovered/Resolved]
  - Gait inability [Unknown]
  - Back pain [Recovered/Resolved]
  - Gait disturbance [Not Recovered/Not Resolved]
  - Pain in extremity [Recovered/Resolved]
  - Oedema peripheral [Not Recovered/Not Resolved]
  - Musculoskeletal stiffness [Unknown]
  - Psoriatic arthropathy [Not Recovered/Not Resolved]
  - Pain in extremity [Unknown]
  - Arthralgia [Not Recovered/Not Resolved]
  - Depression [Unknown]
  - Apathy [Not Recovered/Not Resolved]
  - Osteoarthritis [Unknown]
  - Pain [Unknown]
  - Spondylitis [Unknown]
  - Condition aggravated [Unknown]
  - Vertigo [Unknown]
  - Scoliosis [Unknown]
  - Psoriasis [Recovering/Resolving]
  - Genital blister [Unknown]
  - Lung disorder [Unknown]
  - Nail psoriasis [Not Recovered/Not Resolved]
  - Psoriasis [Unknown]
  - Pruritus [Unknown]
  - Onychomadesis [Not Recovered/Not Resolved]
  - Psoriasis [Recovered/Resolved]
  - Pain of skin [Recovered/Resolved]
  - Skin exfoliation [Not Recovered/Not Resolved]
  - Nail disorder [Unknown]
  - Feeling of despair [Unknown]
  - Red blood cell count decreased [Unknown]
  - Fall [Unknown]
  - Mobility decreased [Unknown]
  - Dysstasia [Unknown]
  - Inappropriate schedule of product administration [Not Recovered/Not Resolved]

NARRATIVE: CASE EVENT DATE: 20161118
